FAERS Safety Report 20938669 (Version 1)
Quarter: 2022Q2

REPORT INFORMATION
  Report Type: Spontaneous
  Country: US (occurrence: US)
  Receive Date: 20220609
  Receipt Date: 20220609
  Transmission Date: 20220720
  Serious: Yes (Death, Other)
  Sender: FDA-Public Use
  Company Number: US-SA-SAC20220607002453

PATIENT
  Age: 66 Year
  Sex: Female

DRUGS (1)
  1. ZANTAC [Suspect]
     Active Substance: RANITIDINE HYDROCHLORIDE
     Dosage: 300 MG, QD
     Route: 065
     Dates: start: 200901, end: 202001

REACTIONS (5)
  - Breast cancer stage IV [Fatal]
  - Colorectal cancer [Fatal]
  - Oesophageal carcinoma [Fatal]
  - Gastrointestinal carcinoma [Fatal]
  - Gastric cancer [Fatal]

NARRATIVE: CASE EVENT DATE: 20080501
